FAERS Safety Report 7201305-1 (Version None)
Quarter: 2010Q4

REPORT INFORMATION
  Report Type: 
  Country: None (occurrence: None)
  Receive Date: 20101229
  Receipt Date: 20101221
  Transmission Date: 20110411
  Serious: Yes (Other)
  Sender: FDA-Public Use
  Company Number: US-SANOFI-AVENTIS-2010SA077863

PATIENT
  Age: 83 Year
  Sex: Male
  Weight: 61.23 kg

DRUGS (2)
  1. DIABETA [Suspect]
     Dosage: 1 TABLET
     Route: 065
     Dates: end: 20100101
  2. DIABETA [Suspect]
     Dosage: HALF A TABLET
     Route: 065
     Dates: start: 20100101

REACTIONS (2)
  - HYPOGLYCAEMIA [None]
  - WEIGHT DECREASED [None]
